FAERS Safety Report 5326731-7 (Version None)
Quarter: 2007Q2

REPORT INFORMATION
  Report Type: 
  Country: None (occurrence: None)
  Receive Date: 20070516
  Receipt Date: 20070503
  Transmission Date: 20071010
  Serious: Yes (Death)
  Sender: FDA-Public Use
  Company Number: US-SHR-US-2007-006377

PATIENT
  Age: 68 Year
  Sex: Male
  Weight: 91 kg

DRUGS (51)
  1. MAGNEVIST [Suspect]
     Indication: ANGIOGRAM
     Dosage: 60 ML, 1 DOSE
     Route: 042
     Dates: start: 19981211, end: 19981211
  2. MAGNEVIST [Suspect]
     Dosage: 60 ML, 1 DOSE
     Route: 042
     Dates: start: 20011026, end: 20011026
  3. MAGNEVIST [Suspect]
     Dosage: 60 ML, 1 DOSE
     Route: 042
     Dates: start: 20020611, end: 20020611
  4. MAGNEVIST [Suspect]
     Dosage: MRI LS
     Dates: start: 20020709, end: 20020709
  5. MAGNEVIST [Suspect]
     Dosage: MRI THORACIC SPINE
     Dates: start: 20020711, end: 20020711
  6. INSULIN [Concomitant]
     Dates: start: 19880101
  7. MONOPRIL [Concomitant]
     Dates: end: 19951201
  8. LISINOPRIL [Concomitant]
     Dates: start: 19951201
  9. HYDROCHLOROTHIAZIDE [Concomitant]
  10. ATENOLOL [Concomitant]
  11. ASPIRIN [Concomitant]
  12. AMLODIPINE [Concomitant]
  13. LASIX [Concomitant]
  14. ISORDIL [Concomitant]
  15. DIABETA [Concomitant]
     Dates: end: 19870101
  16. WARFARIN SODIUM [Concomitant]
  17. ATORVASTATIN CALCIUM [Concomitant]
  18. ASCORBIC ACID [Concomitant]
  19. ZINC SULFATE [Concomitant]
  20. DOCUSATE SODIUM [Concomitant]
  21. GABAPENTIN [Concomitant]
  22. BENADRYL ^WARNER-LAMBERT^               /USA/ [Concomitant]
     Dosage: 50 MG, AS REQ'D
     Route: 048
  23. DOXAZOSIN MESYLATE [Concomitant]
  24. ESOMEPRAZOLE MAGNESIUM [Concomitant]
  25. TRAZODONE HCL [Concomitant]
  26. CELEXA [Concomitant]
  27. PHOSLO [Concomitant]
  28. DARVOCET-N 100 [Concomitant]
  29. NEPHRO-VITE RX [Concomitant]
  30. FERRLECIT                               /USA/ [Concomitant]
  31. CALCIJEX [Concomitant]
     Dosage: WITH DIALYSIS
  32. EPOGEN [Concomitant]
     Dosage: 6000 UNK, UNK
     Dates: start: 20030601, end: 20030627
  33. EPOGEN [Concomitant]
     Dosage: 2000 UNK, 2X/WEEK
     Route: 058
     Dates: start: 19960701
  34. EPOGEN [Concomitant]
     Dosage: 4000 UNITS WITH DIALYSIS
     Dates: start: 19970601
  35. CONRAY [Concomitant]
     Indication: FISTULOGRAM
     Dosage: TOTAL IODINE: 24.2 GM.
     Dates: start: 19970613, end: 19970613
  36. TECHNETIUM (99M TC) SESTAMIBI [Concomitant]
     Dosage: 316 MBQ, 1 DOSE
     Route: 042
     Dates: start: 19990825, end: 19990825
  37. TECHNETIUM (99M TC) SESTAMIBI [Concomitant]
     Dosage: 956 MBQ, 1 DOSE
     Route: 042
     Dates: start: 19990825, end: 19990825
  38. TECHNETIUM (99M TC) SESTAMIBI [Concomitant]
     Dosage: 377 MBQ, 1 DOSE
     Dates: start: 20020716, end: 20020716
  39. TECHNETIUM (99M TC) SESTAMIBI [Concomitant]
     Dosage: 327 MBQ, 1 DOSE
     Route: 042
     Dates: start: 19980217, end: 19980217
  40. TECHNETIUM (99M TC) SESTAMIBI [Concomitant]
     Dosage: 826 MBQ, 1 DOSE
     Route: 042
     Dates: start: 19980217, end: 19980217
  41. OXILAN-300 [Concomitant]
     Dosage: 90 ML, 1 DOSE
     Dates: start: 19990826, end: 19990826
  42. OXILAN-300 [Concomitant]
     Dosage: 175 ML, 1 DOSE
     Dates: start: 20001130, end: 20001130
  43. CONTRAST MEDIA [Concomitant]
     Dosage: UNK, 1 DOSE
     Dates: start: 20001126, end: 20001126
  44. ULTRAVIST 300 [Concomitant]
     Indication: FISTULOGRAM
     Dosage: 50 ML, 1 DOSE
     Dates: start: 20030201, end: 20030201
  45. ULTRAVIST 300 [Concomitant]
     Dosage: 105 ML, 1 DOSE
     Route: 013
     Dates: start: 20030429, end: 20030429
  46. ULTRAVIST 300 [Concomitant]
     Dosage: 70 ML, 1 DOSE
     Dates: start: 20030501, end: 20030501
  47. ULTRAVIST 300 [Concomitant]
     Dosage: 105 ML, 1 DOSE
     Dates: start: 20030429, end: 20030429
  48. ULTRAVIST 300 [Concomitant]
     Dosage: 70 ML, 1 DOSE
     Dates: start: 20030501, end: 20030501
  49. MEVACOR [Concomitant]
     Dates: start: 19960318
  50. OMNIPAQUE ^SCHERING^ [Concomitant]
     Dosage: 40 ML, 1 DOSE
     Dates: start: 19980219, end: 19980219
  51. HEXABRIX                                /NET/ [Concomitant]
     Dosage: 90 ML, 1 DOSE
     Dates: start: 19980219, end: 19980219

REACTIONS (1)
  - NEPHROGENIC FIBROSING DERMOPATHY [None]
